FAERS Safety Report 6047836-1 (Version None)
Quarter: 2009Q1

REPORT INFORMATION
  Report Type: 
  Country: None (occurrence: None)
  Receive Date: 20090123
  Receipt Date: 20090112
  Transmission Date: 20090719
  Serious: Yes (Hospitalization, Other)
  Sender: FDA-Public Use
  Company Number: GB-PFIZER INC-2009150339

PATIENT

DRUGS (5)
  1. SUNITINIB MALATE [Suspect]
     Indication: HAEMANGIOMA-THROMBOCYTOPENIA SYNDROME
     Dosage: 50 MG, 1X/DAY
     Route: 048
     Dates: start: 20081113
  2. INTERFERON [Concomitant]
     Indication: HAEMANGIOMA-THROMBOCYTOPENIA SYNDROME
     Dosage: 3 MILLIONIU, 3 TIMES WEEKLY
     Route: 058
     Dates: start: 20041115
  3. ACICLOVIR [Concomitant]
     Dosage: 800 MG, 1X/DAY
     Dates: start: 20081201
  4. METRONIDAZOLE [Concomitant]
     Dosage: UNK
     Dates: start: 20081201
  5. HYDROGEN PEROXIDE [Concomitant]
     Indication: MUCOSAL INFLAMMATION
     Dosage: UNK
     Dates: start: 20081201

REACTIONS (3)
  - DYSPNOEA [None]
  - LOWER RESPIRATORY TRACT INFECTION [None]
  - OEDEMA [None]
